FAERS Safety Report 19573565 (Version 4)
Quarter: 2021Q3

REPORT INFORMATION
  Report Type: Spontaneous
  Country: US (occurrence: US)
  Receive Date: 20210717
  Receipt Date: 20210823
  Transmission Date: 20211014
  Serious: No
  Sender: FDA-Public Use
  Company Number: US-AMGEN-USASL2021109179

PATIENT
  Age: 51 Year
  Sex: Male

DRUGS (3)
  1. OTEZLA [Suspect]
     Active Substance: APREMILAST
     Indication: PSORIASIS
     Dosage: 30 MILLIGRAM (ACCORDING TO PACKAGE INSTRUCTION)
     Route: 048
     Dates: start: 20210619
  2. BETAMETASON [BETAMETHASONE] [Concomitant]
  3. CLOBETASOL [Concomitant]
     Active Substance: CLOBETASOL
     Dosage: UNK

REACTIONS (4)
  - Dyspepsia [Not Recovered/Not Resolved]
  - Headache [Recovered/Resolved]
  - Flatulence [Recovered/Resolved]
  - Pain [Recovered/Resolved]

NARRATIVE: CASE EVENT DATE: 2021
